FAERS Safety Report 8343885-9 (Version None)
Quarter: 2012Q2

REPORT INFORMATION
  Report Type: 
  Country: None (occurrence: None)
  Receive Date: 20120508
  Receipt Date: 20101207
  Transmission Date: 20120825
  Serious: Yes (Other)
  Sender: FDA-Public Use
  Company Number: US-BAYER-201028197NA

PATIENT
  Age: 17 Year
  Sex: Female
  Weight: 54 kg

DRUGS (16)
  1. YASMIN [Suspect]
     Indication: PREMENSTRUAL SYNDROME
  2. YAZ [Suspect]
     Indication: ORAL CONTRACEPTION
     Dosage: UNK UNK, UNK
     Route: 048
     Dates: start: 20071101, end: 20090101
  3. PREVACID [Concomitant]
     Indication: GASTRITIS
     Dosage: 30 MG, QD
     Route: 048
  4. DROSPIRENONE AND ETHINYL ESTRADIOL [Suspect]
     Indication: ACNE
  5. ZYRTEC [Concomitant]
     Indication: MULTIPLE ALLERGIES
     Dosage: 10 MG, QD
     Route: 048
  6. DESOGESTREL AND ETHINYL ESTRADIOL [Concomitant]
     Indication: CONTRACEPTION
     Dosage: UNK
     Dates: start: 20090901, end: 20091101
  7. ZOLOFT [Concomitant]
     Indication: DEPRESSION
     Dosage: 50 MG, QD
  8. TRI-SPRINTEC [Concomitant]
     Indication: CONTRACEPTION
     Dosage: UNK
     Dates: start: 20090201, end: 20090301
  9. YAZ [Suspect]
     Indication: ACNE
  10. YASMIN [Suspect]
     Indication: ACNE
  11. DROSPIRENONE AND ETHINYL ESTRADIOL [Suspect]
     Indication: ORAL CONTRACEPTION
     Dosage: UNK UNK, UNK
     Route: 048
     Dates: start: 20090401, end: 20090901
  12. YAZ [Suspect]
     Indication: PREMENSTRUAL SYNDROME
  13. DROSPIRENONE AND ETHINYL ESTRADIOL [Suspect]
     Indication: PREMENSTRUAL SYNDROME
  14. YASMIN [Suspect]
     Indication: ORAL CONTRACEPTION
     Dosage: UNK
     Route: 048
  15. ZOFRAN [Concomitant]
     Indication: NAUSEA
     Dosage: 4 MG, TID
  16. SPRINTEC [Concomitant]

REACTIONS (10)
  - VOMITING [None]
  - PANCREATITIS [None]
  - ANAEMIA [None]
  - DIARRHOEA [None]
  - NAUSEA [None]
  - ABDOMINAL PAIN [None]
  - ABDOMINAL PAIN UPPER [None]
  - GALLBLADDER DISORDER [None]
  - DIABETES MELLITUS [None]
  - FLANK PAIN [None]
